FAERS Safety Report 8251126-6 (Version None)
Quarter: 2012Q2

REPORT INFORMATION
  Report Type: 
  Country: None (occurrence: None)
  Receive Date: 20120402
  Receipt Date: 20120325
  Transmission Date: 20120825
  Serious: Yes (Hospitalization, Other)
  Sender: FDA-Public Use
  Company Number: BR-BAYER-2012-029089

PATIENT
  Sex: Male

DRUGS (3)
  1. AVELOX [Suspect]
     Dosage: 400 MG, QD
     Route: 048
     Dates: start: 20120310, end: 20120311
  2. AVELOX [Suspect]
     Dosage: 400 MG, QD
     Route: 048
     Dates: start: 20120306, end: 20120307
  3. AVELOX [Suspect]
     Indication: PNEUMONIA
     Dosage: UNK UNK, QD
     Route: 042
     Dates: start: 20120308, end: 20120309

REACTIONS (6)
  - DIZZINESS [None]
  - ANOSMIA [None]
  - AGEUSIA [None]
  - HOSPITALISATION [None]
  - HYPERHIDROSIS [None]
  - HEADACHE [None]
